FAERS Safety Report 18158411 (Version 6)
Quarter: 2020Q4

REPORT INFORMATION
  Report Type: Spontaneous
  Country: US (occurrence: US)
  Receive Date: 20200817
  Receipt Date: 20201015
  Transmission Date: 20210113
  Serious: Yes (Other)
  Sender: FDA-Public Use
  Company Number: US-PFIZER INC-2020315888

PATIENT
  Age: 52 Year
  Sex: Female
  Weight: 90.25 kg

DRUGS (3)
  1. METRONIDAZOLE. [Suspect]
     Active Substance: METRONIDAZOLE
     Indication: MULTIPLE ALLERGIES
  2. METRONIDAZOLE. [Suspect]
     Active Substance: METRONIDAZOLE
     Indication: INFECTION
     Dosage: UNK
  3. METRONIDAZOLE. [Suspect]
     Active Substance: METRONIDAZOLE
     Indication: PHARYNGEAL SWELLING

REACTIONS (11)
  - Cardiac flutter [Not Recovered/Not Resolved]
  - Throat irritation [Unknown]
  - Pharyngeal swelling [Unknown]
  - Eye pain [Unknown]
  - Headache [Unknown]
  - Respiratory tract congestion [Not Recovered/Not Resolved]
  - Fungal infection [Unknown]
  - Drug hypersensitivity [Unknown]
  - Tonsillar hypertrophy [Unknown]
  - Eye swelling [Not Recovered/Not Resolved]
  - Swelling [Unknown]

NARRATIVE: CASE EVENT DATE: 202008
